FAERS Safety Report 4986456-4 (Version None)
Quarter: 2006Q2

REPORT INFORMATION
  Report Type: 
  Country: None (occurrence: None)
  Receive Date: 20060424
  Receipt Date: 20060413
  Transmission Date: 20061013
  Serious: Yes (Life-Threatening, Other)
  Sender: FDA-Public Use
  Company Number: 200310834BCA

PATIENT
  Age: 41 Year
  Sex: Female
  Weight: 52 kg

DRUGS (13)
  1. CIPRO [Suspect]
     Indication: CELLULITIS
     Dosage: 500 MG, BID, ORAL
     Route: 048
     Dates: start: 20031202
  2. CIPRO [Suspect]
     Indication: SPASTIC PARALYSIS
     Dosage: 500 MG, BID, ORAL
     Route: 048
     Dates: start: 20031202
  3. TIZANIDINE HCL [Suspect]
     Indication: QUADRIPLEGIA
     Dosage: SEE IMAGE
     Route: 048
     Dates: start: 20031113, end: 20031202
  4. TIZANIDINE HCL [Suspect]
     Indication: QUADRIPLEGIA
     Dosage: SEE IMAGE
     Route: 048
     Dates: start: 20031101
  5. TIZANIDINE HCL [Suspect]
     Indication: QUADRIPLEGIA
     Dosage: SEE IMAGE
     Route: 048
     Dates: start: 20031202
  6. TIZANIDINE HCL [Suspect]
     Indication: QUADRIPLEGIA
     Dosage: SEE IMAGE
     Route: 048
     Dates: start: 20031205
  7. FUCIDINE CAP [Concomitant]
  8. ALTACE [Concomitant]
  9. METOPROLOL [Concomitant]
  10. HYDROCHLOROTHIAZIDE [Concomitant]
  11. ZANAFLEX [Concomitant]
  12. RAMIPRIL [Concomitant]
  13. CLINDAMYCIN [Concomitant]

REACTIONS (11)
  - APNOEA [None]
  - DEHYDRATION [None]
  - DRUG INTERACTION [None]
  - GENERAL PHYSICAL HEALTH DETERIORATION [None]
  - HEART RATE DECREASED [None]
  - HYPERTENSION [None]
  - HYPOTENSION [None]
  - HYPOVENTILATION [None]
  - LOSS OF CONSCIOUSNESS [None]
  - PALLOR [None]
  - TONGUE DISORDER [None]
